FAERS Safety Report 9380343 (Version 1)
Quarter: 2013Q3

REPORT INFORMATION
  Report Type: Spontaneous
  Country: US (occurrence: US)
  Receive Date: 20130702
  Receipt Date: 20130702
  Transmission Date: 20140515
  Serious: Yes (Other)
  Sender: FDA-Public Use
  Company Number: US-GLAXOSMITHKLINE-A1029277A

PATIENT
  Age: 47 Year
  Sex: Male

DRUGS (6)
  1. VALTREX [Suspect]
     Indication: PRODUCT USED FOR UNKNOWN INDICATION
     Dosage: 500MG PER DAY
     Route: 065
  2. PREZISTA [Suspect]
     Indication: HIV INFECTION
     Dosage: 800MG PER DAY
     Route: 048
     Dates: start: 200806
  3. TRUVADA [Suspect]
     Indication: HIV INFECTION
     Route: 065
  4. NORVIR [Suspect]
     Indication: HIV INFECTION
     Route: 065
  5. DEXILANT [Concomitant]
     Indication: GASTROOESOPHAGEAL REFLUX DISEASE
  6. LOVAZA [Concomitant]
     Indication: BLOOD TRIGLYCERIDES

REACTIONS (2)
  - Colitis ulcerative [Recovering/Resolving]
  - Colitis [Recovering/Resolving]
